FAERS Safety Report 21877457 (Version 1)
Quarter: 2023Q1

REPORT INFORMATION
  Report Type: Spontaneous
  Country: GB (occurrence: GB)
  Receive Date: 20230118
  Receipt Date: 20230118
  Transmission Date: 20230418
  Serious: Yes (Other)
  Sender: FDA-Public Use
  Company Number: GB-SAMSUNG BIOEPIS-SB-2022-19375

PATIENT
  Age: 58 Year
  Sex: Female

DRUGS (3)
  1. LEFLUNOMIDE [Suspect]
     Active Substance: LEFLUNOMIDE
     Indication: Product used for unknown indication
     Dosage: UNK
     Route: 065
  2. ETANERCEPT [Suspect]
     Active Substance: ETANERCEPT
     Indication: Rheumatoid arthritis
     Dosage: 50 MG, QW
     Route: 058
  3. IMRALDI [Suspect]
     Active Substance: ADALIMUMAB
     Indication: Rheumatoid arthritis
     Dosage: UNK, QOW
     Route: 058

REACTIONS (8)
  - Rheumatoid arthritis [Recovering/Resolving]
  - Miliaria [Not Recovered/Not Resolved]
  - Mobility decreased [Unknown]
  - Fine motor skill dysfunction [Unknown]
  - Poor quality sleep [Unknown]
  - Fatigue [Unknown]
  - Pruritus [Recovered/Resolved]
  - Dry skin [Unknown]
